FAERS Safety Report 11630051 (Version 4)
Quarter: 2016Q1

REPORT INFORMATION
  Report Type: Spontaneous
  Country: US (occurrence: US)
  Receive Date: 20151014
  Receipt Date: 20160224
  Transmission Date: 20160525
  Serious: Yes (Other)
  Sender: FDA-Public Use
  Company Number: US-BAYER-2015-442822

PATIENT
  Age: 31 Year
  Sex: Female
  Weight: 68.27 kg

DRUGS (3)
  1. SPRINTEC [Concomitant]
     Active Substance: ETHINYL ESTRADIOL\NORGESTIMATE
  2. MIRENA [Suspect]
     Active Substance: LEVONORGESTREL
     Indication: CONTRACEPTION
     Dosage: UNK
  3. MIRENA [Suspect]
     Active Substance: LEVONORGESTREL
     Indication: CONTRACEPTION
     Dosage: 20 MCG/24HR, CONT
     Route: 015
     Dates: start: 20140916, end: 20151005

REACTIONS (7)
  - Device physical property issue [None]
  - Uterine perforation [Recovered/Resolved]
  - Blood oestrogen decreased [None]
  - Vaginal haemorrhage [None]
  - Abdominal discomfort [Recovered/Resolved]
  - Device difficult to use [None]
  - Procedural pain [Recovered/Resolved]

NARRATIVE: CASE EVENT DATE: 20140916
